FAERS Safety Report 6754967-7 (Version None)
Quarter: 2010Q2

REPORT INFORMATION
  Report Type: 
  Country: None (occurrence: None)
  Receive Date: 20100602
  Receipt Date: 20100519
  Transmission Date: 20101027
  Serious: Yes (Other)
  Sender: FDA-Public Use
  Company Number: PHHY2010CA32539

PATIENT
  Sex: Female

DRUGS (2)
  1. VISUDYNE [Suspect]
     Dates: start: 20081101, end: 20081101
  2. LUCENTIS [Suspect]
     Dosage: 0.5 MG ONCE EY
     Dates: start: 20081101, end: 20081101

REACTIONS (2)
  - EYE INFLAMMATION [None]
  - VISUAL ACUITY REDUCED [None]
